FAERS Safety Report 11657002 (Version 2)
Quarter: 2015Q4

REPORT INFORMATION
  Report Type: Spontaneous
  Country: US (occurrence: None)
  Receive Date: 20151023
  Receipt Date: 20151029
  Transmission Date: 20160304
  Serious: No
  Sender: FDA-Public Use
  Company Number: US-MDT-ADR-2015-02018

PATIENT
  Age: 56 Year
  Sex: Male

DRUGS (2)
  1. BACLOFEN INTRATHECAL 400 MCG/ML [Suspect]
     Active Substance: BACLOFEN
     Indication: PAIN
     Dosage: 313.28 MCG/DAY
  2. FENTANYL INTRATHECAL 1500 MCG/ML [Suspect]
     Active Substance: FENTANYL
     Dosage: 1,174.8 MCG/DAY

REACTIONS (3)
  - General physical health deterioration [None]
  - Drug dose omission [None]
  - Panic attack [None]
